FAERS Safety Report 5507418-4 (Version None)
Quarter: 2007Q4

REPORT INFORMATION
  Report Type: 
  Country: None (occurrence: None)
  Receive Date: 20071024
  Receipt Date: 20070228
  Transmission Date: 20080405
  Serious: Yes (Other)
  Sender: FDA-Public Use
  Company Number: US-JNJFOC-20070300483

PATIENT
  Age: 79 Year
  Sex: Female

DRUGS (2)
  1. FLEXERIL [Suspect]
     Indication: DRUG USE FOR UNKNOWN INDICATION
  2. FEMARA [Concomitant]

REACTIONS (1)
  - CONVULSION [None]
